FAERS Safety Report 18522156 (Version 2)
Quarter: 2022Q3

REPORT INFORMATION
  Report Type: Spontaneous
  Country: CA (occurrence: CA)
  Receive Date: 20201119
  Receipt Date: 20220711
  Transmission Date: 20221027
  Serious: Yes (Other)
  Sender: FDA-Public Use
  Company Number: CA-GLAXOSMITHKLINE-CA2020GSK228782

PATIENT

DRUGS (2)
  1. AVANDIA [Suspect]
     Active Substance: ROSIGLITAZONE MALEATE
     Indication: Diabetes mellitus
     Dosage: 4-1000MG
     Route: 048
     Dates: start: 20050901, end: 20100128
  2. AVANDAMET [Suspect]
     Active Substance: METFORMIN HYDROCHLORIDE\ROSIGLITAZONE MALEATE
     Indication: Diabetes mellitus
     Dosage: 4/1000MG
     Route: 048
     Dates: start: 20050109, end: 20091030

REACTIONS (3)
  - Myocardial infarction [Unknown]
  - Coronary artery bypass [Unknown]
  - Stent placement [Unknown]
